FAERS Safety Report 6164113-9 (Version None)
Quarter: 2009Q2

REPORT INFORMATION
  Report Type: 
  Country: None (occurrence: None)
  Receive Date: 20090422
  Receipt Date: 20090415
  Transmission Date: 20091009
  Serious: Yes (Hospitalization)
  Sender: FDA-Public Use
  Company Number: B0569974A

PATIENT
  Sex: Female

DRUGS (5)
  1. AUGMENTIN '125' [Suspect]
     Indication: TOOTHACHE
     Dosage: 1UNIT SINGLE DOSE
     Route: 048
     Dates: start: 20081026, end: 20081026
  2. VENTILASTIN [Concomitant]
     Route: 065
  3. NOVOPULMON [Concomitant]
     Route: 065
  4. FORMOTEROL [Concomitant]
     Route: 065
  5. ANTIHISTAMINIC [Concomitant]
     Route: 065

REACTIONS (3)
  - ASTHMATIC CRISIS [None]
  - MALAISE [None]
  - URTICARIA [None]
